FAERS Safety Report 23173538 (Version 3)
Quarter: 2023Q4

REPORT INFORMATION
  Report Type: Spontaneous
  Country: US (occurrence: US)
  Receive Date: 20231111
  Receipt Date: 20231212
  Transmission Date: 20240109
  Serious: Yes (Life-Threatening, Hospitalization, Other)
  Sender: FDA-Public Use
  Company Number: US-SA-SAC20231026000702

PATIENT
  Age: 15 Year
  Sex: Male
  Weight: 56.4 kg

DRUGS (7)
  1. ALTUVIIIO [Suspect]
     Active Substance: EFANESOCTOCOG ALFA
     Indication: Factor VIII deficiency
     Dosage: 50 IU/KG, QW
     Route: 040
     Dates: start: 20230915, end: 20231013
  2. HEMLIBRA [Concomitant]
     Active Substance: EMICIZUMAB-KXWH
     Indication: Factor VIII deficiency
     Dosage: 3MG/KG, QOW
     Route: 058
     Dates: start: 20190531, end: 20230826
  3. HEMLIBRA [Concomitant]
     Active Substance: EMICIZUMAB-KXWH
     Dosage: 6 MG/KG, QD (LOADING DOSE)
     Route: 058
     Dates: start: 20231025, end: 20231025
  4. HEMLIBRA [Concomitant]
     Active Substance: EMICIZUMAB-KXWH
     Dosage: 3 MG/KG, QD
     Route: 058
     Dates: start: 20231026, end: 20231026
  5. HEMLIBRA [Concomitant]
     Active Substance: EMICIZUMAB-KXWH
     Dosage: 1.5 MG/KG, QD
     Route: 058
     Dates: start: 20231031, end: 20231031
  6. HEMLIBRA [Concomitant]
     Active Substance: EMICIZUMAB-KXWH
     Dosage: UNK UNK, QW
     Route: 058
     Dates: start: 20231107
  7. TRANEXAMIC ACID [Concomitant]
     Active Substance: TRANEXAMIC ACID
     Indication: Haemorrhage prophylaxis
     Dosage: UNK
     Dates: start: 20231019, end: 20231024

REACTIONS (9)
  - Gastric ulcer haemorrhage [Recovered/Resolved]
  - Gastroduodenal haemorrhage [Recovered/Resolved]
  - Anaemia [Recovered/Resolved]
  - Haemoglobin decreased [Recovered/Resolved]
  - Coagulation factor VIII level decreased [Recovered/Resolved]
  - Syncope [Unknown]
  - Helicobacter infection [Unknown]
  - Duodenitis [Unknown]
  - Biopsy stomach abnormal [Unknown]

NARRATIVE: CASE EVENT DATE: 20230101
